FAERS Safety Report 20675439 (Version 2)
Quarter: 2022Q3

REPORT INFORMATION
  Report Type: Spontaneous
  Country: AU (occurrence: AU)
  Receive Date: 20220405
  Receipt Date: 20220720
  Transmission Date: 20221026
  Serious: Yes (Hospitalization, Other)
  Sender: FDA-Public Use
  Company Number: AU-PFIZER INC-202200483224

PATIENT
  Age: 60 Year
  Sex: Female

DRUGS (3)
  1. DILANTIN [Suspect]
     Active Substance: PHENYTOIN
     Indication: Epilepsy
     Dosage: 600 MG, DAILY
  2. DILANTIN [Suspect]
     Active Substance: PHENYTOIN
     Dosage: 400 MG, DAILY
  3. DILANTIN [Suspect]
     Active Substance: PHENYTOIN
     Dosage: 600 MG, DAILY

REACTIONS (8)
  - Generalised tonic-clonic seizure [Unknown]
  - Facial bones fracture [Recovering/Resolving]
  - Cervical vertebral fracture [Recovering/Resolving]
  - Hepatic fibrosis [Unknown]
  - Hepatic steatosis [Unknown]
  - Fatigue [Unknown]
  - Decreased appetite [Unknown]
  - Intentional product use issue [Unknown]

NARRATIVE: CASE EVENT DATE: 20220327
